FAERS Safety Report 14521059 (Version 2)
Quarter: 2018Q1

REPORT INFORMATION
  Report Type: Spontaneous
  Country: US (occurrence: US)
  Receive Date: 20180212
  Receipt Date: 20180316
  Transmission Date: 20180509
  Serious: No
  Sender: FDA-Public Use
  Company Number: US-009507513-1802USA002545

PATIENT
  Age: 29 Year
  Sex: Female

DRUGS (2)
  1. FOLLISTIM [Suspect]
     Active Substance: FOLLITROPIN
     Dosage: UNK
  2. FOLLISTIM [Suspect]
     Active Substance: FOLLITROPIN
     Dosage: UNK

REACTIONS (2)
  - Product quality issue [Unknown]
  - Adverse event [Unknown]
